FAERS Safety Report 8208454-X (Version None)
Quarter: 2012Q1

REPORT INFORMATION
  Report Type: 
  Country: None (occurrence: None)
  Receive Date: 20120314
  Receipt Date: 20120309
  Transmission Date: 20120608
  Serious: Yes (Death)
  Sender: FDA-Public Use
  Company Number: US-PFIZER INC-2012064208

PATIENT
  Age: 23 Year
  Sex: Female

DRUGS (4)
  1. DIPHENHYDRAMINE HCL [Suspect]
     Dosage: UNK
  2. ALPRAZOLAM [Suspect]
     Dosage: UNK
  3. TRAMADOL HYDROCHLORIDE [Suspect]
     Dosage: UNK
  4. DIAZEPAM [Suspect]
     Dosage: UNK

REACTIONS (1)
  - TOXICITY TO VARIOUS AGENTS [None]
